FAERS Safety Report 9459919 (Version 1)
Quarter: 2013Q3

REPORT INFORMATION
  Report Type: Spontaneous
  Country: FR (occurrence: FR)
  Receive Date: 20130815
  Receipt Date: 20130815
  Transmission Date: 20140515
  Serious: Yes (Hospitalization)
  Sender: FDA-Public Use
  Company Number: FR-BAYER-2013-097666

PATIENT
  Age: 65 Year
  Sex: Female

DRUGS (1)
  1. IZILOX [Suspect]
     Indication: LUNG INFECTION
     Dosage: 400 MG, QD
     Route: 048
     Dates: start: 20130717, end: 20130729

REACTIONS (1)
  - Agranulocytosis [Recovered/Resolved]
